FAERS Safety Report 15614609 (Version 3)
Quarter: 2019Q1

REPORT INFORMATION
  Report Type: Spontaneous
  Country: US (occurrence: US)
  Receive Date: 20181113
  Receipt Date: 20190121
  Transmission Date: 20190417
  Serious: No
  Sender: FDA-Public Use
  Company Number: US-ASTRAZENECA-2018SE65752

PATIENT
  Age: 87 Year
  Sex: Male
  Weight: 68 kg

DRUGS (3)
  1. ALBUTEROL SULFATE. [Concomitant]
     Active Substance: ALBUTEROL SULFATE
     Indication: LUNG DISORDER
     Route: 055
     Dates: start: 2013
  2. OXYGEN. [Concomitant]
     Active Substance: OXYGEN
     Dosage: CONTINUOUSLY
     Route: 065
  3. SYMBICORT [Suspect]
     Active Substance: BUDESONIDE\FORMOTEROL FUMARATE DIHYDRATE
     Indication: CHRONIC OBSTRUCTIVE PULMONARY DISEASE
     Dosage: 80/4.5 UG, TWO INHALATIONS, TWO TIMES A DAY
     Route: 055
     Dates: start: 2013

REACTIONS (6)
  - Periarthritis [Unknown]
  - Off label use [Unknown]
  - Wrong technique in device usage process [Unknown]
  - Intentional device misuse [Unknown]
  - Device malfunction [Unknown]
  - Product use issue [Unknown]

NARRATIVE: CASE EVENT DATE: 2013
